FAERS Safety Report 4735708-1 (Version None)
Quarter: 2005Q3

REPORT INFORMATION
  Report Type: 
  Country: None (occurrence: None)
  Receive Date: 20050805
  Receipt Date: 20050803
  Transmission Date: 20060218
  Serious: Yes (Death)
  Sender: FDA-Public Use
  Company Number: AU-BRISTOL-MYERS SQUIBB COMPANY-13062393

PATIENT
  Age: 83 Year
  Sex: Male
  Weight: 94 kg

DRUGS (2)
  1. PACLITAXEL [Suspect]
     Indication: PROSTATE CANCER METASTATIC
     Route: 042
     Dates: start: 20050606, end: 20050727
  2. VINORELBINE [Suspect]
     Indication: PROSTATE CANCER METASTATIC
     Route: 042
     Dates: start: 20050606, end: 20050727

REACTIONS (1)
  - ACUTE MYOCARDIAL INFARCTION [None]
